FAERS Safety Report 23865567 (Version 4)
Quarter: 2025Q2

REPORT INFORMATION
  Report Type: Report from Study
  Country: US (occurrence: US)
  Receive Date: 20240517
  Receipt Date: 20250505
  Transmission Date: 20250717
  Serious: Yes (Other)
  Sender: TAKEDA
  Company Number: US-TAKEDA-2024TUS019115

PATIENT
  Age: 14 Year
  Sex: Female
  Weight: 56 kg

DRUGS (12)
  1. HUMAN IMMUNOGLOBULIN G\HYALURONIDASE RECOMBINANT HUMAN [Suspect]
     Active Substance: HUMAN IMMUNOGLOBULIN G\HYALURONIDASE (HUMAN RECOMBINANT)
     Indication: Immune system disorder
  2. HUMAN IMMUNOGLOBULIN G\HYALURONIDASE RECOMBINANT HUMAN [Suspect]
     Active Substance: HUMAN IMMUNOGLOBULIN G\HYALURONIDASE (HUMAN RECOMBINANT)
     Indication: Hypergammaglobulinaemia
     Dosage: 30 GRAM, Q4WEEKS
  3. HIZENTRA [Suspect]
     Active Substance: HUMAN IMMUNOGLOBULIN G
     Indication: Product used for unknown indication
  4. OMNICEF [Suspect]
     Active Substance: CEFDINIR
     Indication: Sinusitis
  5. ACETAMINOPHEN [Concomitant]
     Active Substance: ACETAMINOPHEN
  6. EPINEPHRINE [Concomitant]
     Active Substance: EPINEPHRINE
  7. ALBUTEROL SULFATE [Concomitant]
     Active Substance: ALBUTEROL SULFATE
  8. LIDOCAINE [Concomitant]
     Active Substance: LIDOCAINE
  9. SYMBICORT [Concomitant]
     Active Substance: BUDESONIDE\FORMOTEROL FUMARATE DIHYDRATE
  10. DIPHENHYDRAMINE HYDROCHLORIDE [Concomitant]
     Active Substance: DIPHENHYDRAMINE HYDROCHLORIDE
  11. ATROVENT HFA [Concomitant]
     Active Substance: IPRATROPIUM BROMIDE
  12. SODIUM CHLORIDE [Concomitant]
     Active Substance: SODIUM CHLORIDE

REACTIONS (12)
  - Autoimmune thyroiditis [Unknown]
  - Nasopharyngitis [Unknown]
  - Sinusitis [Unknown]
  - Inappropriate schedule of product administration [Unknown]
  - Influenza [Unknown]
  - Illness [Unknown]
  - Viral infection [Unknown]
  - Urticaria [Unknown]
  - Infusion site erythema [Unknown]
  - Fatigue [Unknown]
  - Headache [Unknown]
  - Erythema [Unknown]

NARRATIVE: CASE EVENT DATE: 20250309
